FAERS Safety Report 4327828-0 (Version None)
Quarter: 2004Q1

REPORT INFORMATION
  Report Type: 
  Country: None (occurrence: None)
  Receive Date: 20040325
  Receipt Date: 20040317
  Transmission Date: 20041129
  Serious: No
  Sender: FDA-Public Use
  Company Number: 2004UW05171

PATIENT
  Age: 16 Year
  Sex: Female

DRUGS (1)
  1. SEROQUEL [Suspect]
     Dates: end: 20040101

REACTIONS (2)
  - BONE MARROW DEPRESSION [None]
  - GRANULOCYTOSIS [None]
